FAERS Safety Report 8758901 (Version 2)
Quarter: 2012Q4

REPORT INFORMATION
  Report Type: 
  Country: DE (occurrence: DE)
  Receive Date: 20120829
  Receipt Date: 20120911
  Transmission Date: 20130627
  Serious: Yes (Death, Other)
  Sender: FDA-Public Use
  Company Number: DE-CELGENEUS-062-21880-12082754

PATIENT
  Age: 73 Year
  Sex: Female

DRUGS (2)
  1. REVLIMID [Suspect]
     Indication: DIFFUSE LARGE B-CELL LYMPHOMA
     Dosage: 25 Milligram
     Route: 048
     Dates: start: 201202, end: 201204
  2. DEXAMETHASONE [Concomitant]
     Indication: DIFFUSE LARGE B-CELL LYMPHOMA
     Dosage: de-Escalation
     Route: 065
     Dates: start: 201202

REACTIONS (5)
  - Circulatory collapse [Fatal]
  - Sepsis [Fatal]
  - Pneumonia [Unknown]
  - Pancytopenia [Unknown]
  - Diffuse large B-cell lymphoma refractory [Unknown]
